FAERS Safety Report 6163892-4 (Version None)
Quarter: 2009Q2

REPORT INFORMATION
  Report Type: 
  Country: None (occurrence: None)
  Receive Date: 20090422
  Receipt Date: 20090414
  Transmission Date: 20091009
  Serious: Yes (Hospitalization, Disabling, Other)
  Sender: FDA-Public Use
  Company Number: US-MERCK-0712USA08946

PATIENT
  Age: 55 Year
  Sex: Female
  Weight: 69 kg

DRUGS (5)
  1. FOSAMAX [Suspect]
     Indication: OSTEOPOROSIS
     Route: 048
     Dates: start: 20000228, end: 20060101
  2. FOSAMAX [Suspect]
     Route: 048
     Dates: end: 20070611
  3. PROZAC [Concomitant]
     Indication: DEPRESSION
     Route: 065
     Dates: start: 19900101
  4. PROZAC [Concomitant]
     Indication: ANXIETY
     Route: 065
     Dates: start: 19900101
  5. ATIVAN [Concomitant]
     Indication: ANXIETY
     Route: 065
     Dates: start: 19900101

REACTIONS (36)
  - ABDOMINAL DISTENSION [None]
  - ANAEMIA [None]
  - ANXIETY [None]
  - ARTHROPATHY [None]
  - BARRETT'S OESOPHAGUS [None]
  - CERUMEN IMPACTION [None]
  - DELIRIUM [None]
  - DEPRESSION [None]
  - DIAPHRAGMATIC HERNIA [None]
  - DISSOCIATIVE IDENTITY DISORDER [None]
  - DRUG ABUSE [None]
  - EXOSTOSIS [None]
  - GALLBLADDER DISORDER [None]
  - GASTRIC ULCER [None]
  - GINGIVAL ABSCESS [None]
  - GLOSSITIS [None]
  - HEADACHE [None]
  - HERNIA [None]
  - HYPONATRAEMIA [None]
  - INSOMNIA [None]
  - IRON DEFICIENCY ANAEMIA [None]
  - NUMB CHIN SYNDROME [None]
  - ORAL DISORDER [None]
  - OSTEOMYELITIS [None]
  - OSTEONECROSIS [None]
  - PAIN [None]
  - PELVIC DISCOMFORT [None]
  - POST PROCEDURAL COMPLICATION [None]
  - RIB FRACTURE [None]
  - SINUSITIS [None]
  - SMALL INTESTINAL OBSTRUCTION [None]
  - SOMNAMBULISM [None]
  - SPINAL COMPRESSION FRACTURE [None]
  - SUBSTANCE ABUSE [None]
  - WEIGHT DECREASED [None]
  - WITHDRAWAL SYNDROME [None]
